FAERS Safety Report 17404270 (Version 3)
Quarter: 2020Q1

REPORT INFORMATION
  Report Type: Spontaneous
  Country: PL (occurrence: PL)
  Receive Date: 20200211
  Receipt Date: 20200218
  Transmission Date: 20200409
  Serious: Yes (Other)
  Sender: FDA-Public Use
  Company Number: PL-UCBSA-2020006070

PATIENT
  Age: 18 Year
  Sex: Male

DRUGS (4)
  1. KEPPRA [Suspect]
     Active Substance: LEVETIRACETAM
     Dosage: 1000 MILLIGRAM, DAILY
     Dates: start: 201901
  2. SODIUM VALPROATE [Suspect]
     Active Substance: VALPROATE SODIUM
     Indication: EPILEPSY
     Dosage: UNKNOWN DOSE
     Dates: end: 201804
  3. KEPPRA [Suspect]
     Active Substance: LEVETIRACETAM
     Dosage: 1200 MILLIGRAM, DAILY
     Dates: start: 201807
  4. KEPPRA [Suspect]
     Active Substance: LEVETIRACETAM
     Indication: EPILEPSY
     Dosage: 1600 MILLIGRAM, DAILY
     Dates: start: 2017

REACTIONS (2)
  - Hypersexuality [Recovering/Resolving]
  - Aggression [Recovered/Resolved]

NARRATIVE: CASE EVENT DATE: 2017
